FAERS Safety Report 12880326 (Version 1)
Quarter: 2016Q4

REPORT INFORMATION
  Report Type: Report from Study
  Country: JP (occurrence: JP)
  Receive Date: 20161025
  Receipt Date: 20161025
  Transmission Date: 20170207
  Serious: Yes (Other)
  Sender: FDA-Public Use
  Company Number: JP-ASTELLAS-2014US013604

PATIENT

DRUGS (1)
  1. ERLOTINIB [Suspect]
     Active Substance: ERLOTINIB
     Indication: LUNG ADENOCARCINOMA
     Route: 065

REACTIONS (15)
  - Aspartate aminotransferase increased [Unknown]
  - Anaemia [Unknown]
  - Paronychia [Unknown]
  - Leukopenia [Unknown]
  - Blood bilirubin increased [Unknown]
  - Neutropenia [Unknown]
  - Interstitial lung disease [Unknown]
  - Vomiting [Unknown]
  - Thrombocytopenia [Unknown]
  - Diarrhoea [Unknown]
  - Infection [Unknown]
  - Rash [Unknown]
  - Malaise [Unknown]
  - Nausea [Unknown]
  - Alanine aminotransferase increased [Unknown]
